FAERS Safety Report 7332926-3 (Version None)
Quarter: 2011Q1

REPORT INFORMATION
  Report Type: 
  Country: None (occurrence: None)
  Receive Date: 20110304
  Receipt Date: 20110221
  Transmission Date: 20110831
  Serious: Yes (Hospitalization)
  Sender: FDA-Public Use
  Company Number: PHHY2011PL15536

PATIENT
  Age: 44 Year
  Sex: Female

DRUGS (2)
  1. APAP TAB [Concomitant]
  2. KETONAL LEK [Suspect]
     Indication: BACK PAIN
     Dosage: UNK
     Route: 061
     Dates: start: 20100720, end: 20100720

REACTIONS (3)
  - GENERALISED ERYTHEMA [None]
  - SYNCOPE [None]
  - PYREXIA [None]
